FAERS Safety Report 20904419 (Version 1)
Quarter: 2022Q2

REPORT INFORMATION
  Report Type: Spontaneous
  Country: US (occurrence: US)
  Receive Date: 20220602
  Receipt Date: 20220602
  Transmission Date: 20220721
  Serious: Yes (Other)
  Sender: FDA-Public Use
  Company Number: US-SUN PHARMACEUTICAL INDUSTRIES LTD-2022R1-338783

PATIENT
  Age: 80 Year
  Sex: Female

DRUGS (1)
  1. NITROFURANTOIN [Suspect]
     Active Substance: NITROFURANTOIN
     Indication: Urinary tract infection
     Dosage: UNK
     Route: 065

REACTIONS (4)
  - Pulmonary toxicity [Recovering/Resolving]
  - Hypertransaminasaemia [Recovering/Resolving]
  - Leukocytosis [Recovering/Resolving]
  - Pulmonary toxicity [Recovering/Resolving]
